FAERS Safety Report 7973440-1 (Version None)
Quarter: 2011Q4

REPORT INFORMATION
  Report Type: 
  Country: None (occurrence: None)
  Receive Date: 20111213
  Receipt Date: 20111201
  Transmission Date: 20120403
  Serious: Yes (Other)
  Sender: FDA-Public Use
  Company Number: CA-JNJFOC-20111202626

PATIENT
  Sex: Male
  Weight: 61 kg

DRUGS (6)
  1. CALCIUM WITH VITAMIN D [Concomitant]
  2. VITAMIN B-12 [Concomitant]
     Route: 030
  3. REMICADE [Suspect]
     Indication: PRODUCT USED FOR UNKNOWN INDICATION
     Route: 042
  4. PREDNISONE [Concomitant]
  5. IRON [Concomitant]
  6. FOSAMAX [Concomitant]
     Route: 048

REACTIONS (1)
  - SYNCOPE [None]
